FAERS Safety Report 5347891-8 (Version None)
Quarter: 2007Q2

REPORT INFORMATION
  Report Type: 
  Country: None (occurrence: None)
  Receive Date: 20070516
  Receipt Date: 20060424
  Transmission Date: 20071010
  Serious: Yes (Other)
  Sender: FDA-Public Use
  Company Number: 06-000354

PATIENT
  Age: 54 Year
  Sex: Female
  Weight: 59 kg

DRUGS (4)
  1. FEMRING [Suspect]
     Indication: HOT FLUSH
     Dosage: 0.05 MG, QD, VAGINAL
     Route: 067
     Dates: start: 20040701, end: 20060419
  2. FEMRING [Suspect]
     Indication: NIGHT SWEATS
     Dosage: 0.05 MG, QD, VAGINAL
     Route: 067
     Dates: start: 20040701, end: 20060419
  3. FEMRING [Suspect]
     Indication: VULVOVAGINAL DRYNESS
     Dosage: 0.05 MG, QD, VAGINAL
     Route: 067
     Dates: start: 20040701, end: 20060419
  4. WELLBUTRIN SR [Concomitant]

REACTIONS (4)
  - UTERINE CANCER [None]
  - UTERINE HAEMORRHAGE [None]
  - UTERINE LEIOMYOMA [None]
  - VAGINAL HAEMORRHAGE [None]
